FAERS Safety Report 21113790 (Version 14)
Quarter: 2023Q1

REPORT INFORMATION
  Report Type: Report from Study
  Country: TW (occurrence: None)
  Receive Date: 20220721
  Receipt Date: 20230112
  Transmission Date: 20230418
  Serious: Yes (Hospitalization, Other)
  Sender: FDA-Public Use
  Company Number: TW-ROCHE-3135062

PATIENT
  Age: 69 Year
  Sex: Male
  Weight: 72.7 kg

DRUGS (56)
  1. ATEZOLIZUMAB [Suspect]
     Active Substance: ATEZOLIZUMAB
     Indication: Hepatocellular carcinoma
     Dosage: ON 14/JUN/2022 HE RECEIVED THE MOST RECENT DOSE OF ATEZOLIZUMAB (1200 MG) PRIOR TO AE.
     Route: 041
     Dates: start: 20220614
  2. BEVACIZUMAB [Suspect]
     Active Substance: BEVACIZUMAB
     Indication: Hepatocellular carcinoma
     Dosage: ON 14/JUN/2022 HE RECEIVED THE MOST RECENT DOSE OF BEVACIZUMAB  (1107 MG) PRIOR TO AE
     Route: 042
     Dates: start: 20220614
  3. TPST-1120 [Suspect]
     Active Substance: TPST-1120
     Indication: Hepatocellular carcinoma
     Dosage: ON 14/JUN/2022 HE RECEIVED THE MOST RECENT DOSE OF TPST-1120  (600 MG) PRIOR TO AE,  ON DAYS 1-21 OF
     Route: 048
     Dates: start: 20220614
  4. BARACLUDE [Concomitant]
     Active Substance: ENTECAVIR
     Indication: Viral hepatitis carrier
     Dates: start: 20220409, end: 20220713
  5. BARACLUDE [Concomitant]
     Active Substance: ENTECAVIR
     Dates: start: 20220715, end: 20220729
  6. URSODIOL [Concomitant]
     Active Substance: URSODIOL
     Indication: Prophylaxis
     Dates: start: 20220409
  7. BISOPROLOL FUMARATE [Concomitant]
     Active Substance: BISOPROLOL FUMARATE
     Indication: Hypertension
     Dates: start: 20220411, end: 20220714
  8. DIOVAN [Concomitant]
     Active Substance: VALSARTAN
     Indication: Hypertension
     Dates: start: 20220607, end: 20220607
  9. NEXIUM [Concomitant]
     Active Substance: ESOMEPRAZOLE MAGNESIUM
     Indication: Chronic gastritis
     Dates: start: 20220607, end: 20220607
  10. NEXIUM [Concomitant]
     Active Substance: ESOMEPRAZOLE MAGNESIUM
     Dates: start: 20220607, end: 20220713
  11. ANSUMYCIN [Concomitant]
     Indication: COVID-19
     Dates: start: 20220620, end: 20220623
  12. ACETIN [Concomitant]
     Indication: COVID-19
     Route: 048
     Dates: start: 20220710, end: 20220725
  13. ZCOUGH [Concomitant]
     Indication: COVID-19
     Dates: start: 20220620, end: 20220623
  14. TRETOQUINOL HYDROCHLORIDE MONOHYDRATE [Concomitant]
     Active Substance: TRETOQUINOL HYDROCHLORIDE MONOHYDRATE
     Indication: COVID-19
     Dates: start: 20220620, end: 20220626
  15. PANADOL [Concomitant]
     Active Substance: ACETAMINOPHEN
     Indication: COVID-19
     Dates: start: 20220620, end: 20220626
  16. BUWECON [Concomitant]
     Indication: COVID-19
     Dates: start: 20220620, end: 20220626
  17. BROWN MIXTURE (TAIWAN) [Concomitant]
     Indication: COVID-19
     Dates: start: 20220620, end: 20220626
  18. IMODIUM [Concomitant]
     Active Substance: LOPERAMIDE HYDROCHLORIDE
     Indication: COVID-19
     Dates: start: 20220620, end: 20220705
  19. NORVASC [Concomitant]
     Active Substance: AMLODIPINE BESYLATE
     Indication: Hypertension
     Dates: start: 20220614, end: 20220614
  20. ACTEIN EFFERVESCENT [Concomitant]
     Dates: start: 20220630, end: 20220705
  21. TAITA NO.5 [Concomitant]
     Indication: Decreased appetite
     Dosage: 400 ML /BAG
     Dates: start: 20220630, end: 20220630
  22. ACETAMINOPHEN [Concomitant]
     Active Substance: ACETAMINOPHEN
     Indication: Pyrexia
     Route: 048
     Dates: start: 20220705, end: 20220721
  23. ULTRACET [Concomitant]
     Active Substance: ACETAMINOPHEN\TRAMADOL HYDROCHLORIDE
     Indication: Back pain
     Dosage: 100 MG/2 ML /AMP
     Route: 042
     Dates: start: 20220712, end: 20220712
  24. ULTRACET [Concomitant]
     Active Substance: ACETAMINOPHEN\TRAMADOL HYDROCHLORIDE
     Route: 048
     Dates: start: 20220713, end: 20220714
  25. ULTRACET [Concomitant]
     Active Substance: ACETAMINOPHEN\TRAMADOL HYDROCHLORIDE
     Route: 048
     Dates: start: 20220713, end: 20220727
  26. ENTECAVIR [Concomitant]
     Active Substance: ENTECAVIR
     Dates: start: 20220409, end: 20220713
  27. ENTECAVIR [Concomitant]
     Active Substance: ENTECAVIR
     Dates: start: 20220715, end: 20220729
  28. BISOPROLOL FUMARATE [Concomitant]
     Active Substance: BISOPROLOL FUMARATE
     Indication: Hypertension
     Dates: start: 20220411, end: 20220714
  29. VALSARTAN [Concomitant]
     Active Substance: VALSARTAN
     Indication: Hypertension
     Route: 048
     Dates: start: 20220607, end: 20220707
  30. ESOMEPRAZOLE MAGNESIUM [Concomitant]
     Active Substance: ESOMEPRAZOLE MAGNESIUM
     Indication: Chronic gastritis
     Route: 048
     Dates: start: 20220607, end: 20220707
  31. AMLODIPINE BESYLATE [Concomitant]
     Active Substance: AMLODIPINE BESYLATE
     Indication: Hypertension
     Dates: start: 20220614, end: 20220714
  32. ESOMEPRAZOLE [Concomitant]
     Active Substance: ESOMEPRAZOLE
     Route: 042
     Dates: start: 20220714, end: 20220715
  33. ESOMEPRAZOLE [Concomitant]
     Active Substance: ESOMEPRAZOLE
     Route: 042
     Dates: start: 20220716, end: 20220727
  34. GLYCYRRHIZA EXTRACT [Concomitant]
     Active Substance: GLYCYRRHIZA EXTRACT
     Indication: COVID-19
     Dates: start: 20220701, end: 20220706
  35. FLOMOXEF SODIUM [Concomitant]
     Active Substance: FLOMOXEF SODIUM
     Indication: Pyrexia
     Route: 042
     Dates: start: 20220707, end: 20220713
  36. GLYCYRRHIZA EXTRACT [Concomitant]
     Active Substance: GLYCYRRHIZA EXTRACT
     Indication: COVID-19
     Dates: start: 20220701, end: 20220706
  37. MONTMORILLONITE [Concomitant]
     Active Substance: MONTMORILLONITE
     Dates: start: 20220707, end: 20220712
  38. BISACODYL [Concomitant]
     Active Substance: BISACODYL
     Indication: Constipation
     Dates: start: 20220709, end: 20220715
  39. BISACODYL [Concomitant]
     Active Substance: BISACODYL
     Dates: start: 20220717, end: 20220717
  40. DEXTROMETHORPHAN HYDROBROMIDE [Concomitant]
     Active Substance: DEXTROMETHORPHAN HYDROBROMIDE
     Indication: Cough
     Dates: start: 20220711, end: 20220715
  41. SENNOSIDES A AND B [Concomitant]
     Active Substance: SENNOSIDES A AND B
     Indication: Constipation
     Dates: start: 20220715, end: 20220715
  42. ALBUTEROL SULFATE\IPRATROPIUM BROMIDE [Concomitant]
     Active Substance: ALBUTEROL SULFATE\IPRATROPIUM BROMIDE
     Indication: Cough
     Dates: start: 20220713, end: 20220719
  43. PIPERACILLIN AND TAZOBACTAM [Concomitant]
     Active Substance: PIPERACILLIN SODIUM\TAZOBACTAM SODIUM
     Indication: Pyrexia
     Dosage: 2000 MG/ 250 MG
     Route: 042
     Dates: start: 20220713, end: 20220714
  44. PIPERACILLIN AND TAZOBACTAM [Concomitant]
     Active Substance: PIPERACILLIN SODIUM\TAZOBACTAM SODIUM
     Dosage: 2000 MG/ 250 MG
     Route: 042
     Dates: start: 20220714, end: 20220715
  45. PIPERACILLIN AND TAZOBACTAM [Concomitant]
     Active Substance: PIPERACILLIN SODIUM\TAZOBACTAM SODIUM
     Dosage: 2000 MG/ 250 MG
     Route: 042
     Dates: start: 20220715, end: 20220726
  46. CODEINE PHOSPHATE [Concomitant]
     Active Substance: CODEINE PHOSPHATE
     Indication: Cough
     Dates: start: 20220715, end: 20220726
  47. COUGH MIXTURE A [Concomitant]
     Indication: Cough
     Dates: start: 20220715, end: 20220715
  48. COUGH MIXTURE A [Concomitant]
     Dates: start: 20220712, end: 20220715
  49. MIDODRINE [Concomitant]
     Active Substance: MIDODRINE
  50. RINDERON [Concomitant]
     Route: 042
     Dates: start: 20220727, end: 20220727
  51. MORPHINE HYDROCHLORIDE [Concomitant]
     Active Substance: MORPHINE HYDROCHLORIDE
     Dates: start: 20220727, end: 20220728
  52. DIPHENHYDRAMINE HYDROCHLORIDE [Concomitant]
     Active Substance: DIPHENHYDRAMINE HYDROCHLORIDE
     Dates: start: 20220725, end: 20220729
  53. BISMUTH SUBGALLATE [Concomitant]
     Active Substance: BISMUTH SUBGALLATE
     Dates: start: 20220725, end: 20220729
  54. ZINC OXIDE [Concomitant]
     Active Substance: ZINC OXIDE
     Dates: start: 20220725, end: 20220729
  55. BENZOCAINE [Concomitant]
     Active Substance: BENZOCAINE
     Dates: start: 20220725, end: 20220729
  56. TETRACYCLINE HYDROCHLORIDE [Concomitant]
     Active Substance: TETRACYCLINE HYDROCHLORIDE
     Dates: start: 20220725, end: 20220729

REACTIONS (4)
  - Decreased appetite [Not Recovered/Not Resolved]
  - Proteinuria [Not Recovered/Not Resolved]
  - Acute kidney injury [Not Recovered/Not Resolved]
  - Hepatic function abnormal [Not Recovered/Not Resolved]

NARRATIVE: CASE EVENT DATE: 20220616
